FAERS Safety Report 5723280-9 (Version None)
Quarter: 2008Q2

REPORT INFORMATION
  Report Type: 
  Country: None (occurrence: None)
  Receive Date: 20080430
  Receipt Date: 20080225
  Transmission Date: 20081010
  Serious: Yes (Other)
  Sender: FDA-Public Use
  Company Number: US-ASTRAZENECA-2008UW03989

PATIENT
  Age: 62 Year
  Sex: Female
  Weight: 84.4 kg

DRUGS (6)
  1. NEXIUM [Suspect]
     Indication: GASTROOESOPHAGEAL REFLUX DISEASE
     Route: 048
     Dates: start: 20060101
  2. CARDIZEM [Concomitant]
  3. ATIVAN [Concomitant]
  4. ALBUTEROL [Concomitant]
  5. LASIX [Concomitant]
  6. TRAMADOL HCL [Concomitant]

REACTIONS (1)
  - DYSPNOEA [None]
